FAERS Safety Report 4714836-0 (Version None)
Quarter: 2005Q3

REPORT INFORMATION
  Report Type: 
  Country: None (occurrence: None)
  Receive Date: 20050715
  Receipt Date: 20050527
  Transmission Date: 20060218
  Serious: Yes (Hospitalization)
  Sender: FDA-Public Use
  Company Number: FRWYE699627MAY05

PATIENT
  Sex: Female

DRUGS (4)
  1. ENBREL [Suspect]
     Indication: RHEUMATOID ARTHRITIS
     Dosage: UNKNOWN
     Route: 058
     Dates: start: 20030801, end: 20050315
  2. ENBREL [Suspect]
     Route: 058
     Dates: start: 20050501, end: 20050501
  3. PREDNISONE [Concomitant]
     Dates: start: 20050501, end: 20050524
  4. FLURBIPROFEN [Concomitant]
     Dates: start: 19890101

REACTIONS (1)
  - SEPTIC ARTHRITIS STAPHYLOCOCCAL [None]
